FAERS Safety Report 4665255-7 (Version None)
Quarter: 2005Q2

REPORT INFORMATION
  Report Type: 
  Country: None (occurrence: None)
  Receive Date: 20050517
  Receipt Date: 20050510
  Transmission Date: 20051028
  Serious: Yes (Death, Hospitalization)
  Sender: FDA-Public Use
  Company Number: 213804

PATIENT
  Age: 54 Year
  Sex: Male
  Weight: 69.8 kg

DRUGS (8)
  1. XOLAIR [Suspect]
     Indication: ASTHMA
     Dosage: 375 MG,Q2W, SUBCUTANEOUS
     Route: 058
     Dates: start: 20041129
  2. SINGULAIR [Concomitant]
  3. ALLEGRA-D [Concomitant]
  4. ADVAIR DISKUS (SALMETEROL XINAFOATE, FLUTICASONE PROPIONATE) [Concomitant]
  5. FLONASE [Concomitant]
  6. DUONEB (IPRATROPIUM BROMIDE, ALBUTEROL SULFATE, ALBUTEROL) [Concomitant]
  7. PROVENTIL (ALBUTEROL, ALBUTEROL SULFATE) [Concomitant]
  8. ASTELIN [Concomitant]

REACTIONS (4)
  - ACUTE RESPIRATORY FAILURE [None]
  - ASTHMA [None]
  - CARDIO-RESPIRATORY ARREST [None]
  - DISEASE RECURRENCE [None]
